FAERS Safety Report 6306789-9 (Version None)
Quarter: 2009Q3

REPORT INFORMATION
  Report Type: 
  Country: None (occurrence: None)
  Receive Date: 20090811
  Receipt Date: 20090811
  Transmission Date: 20100115
  Serious: Yes (Other)
  Sender: FDA-Public Use
  Company Number: None

PATIENT
  Age: 42 Year
  Sex: Male
  Weight: 86.1834 kg

DRUGS (1)
  1. ROGAINE FOAM [Suspect]
     Indication: ALOPECIA
     Dosage: 1 PER DAY
     Dates: start: 20080528, end: 20090727

REACTIONS (7)
  - ABDOMINAL PAIN [None]
  - BALANCE DISORDER [None]
  - DIZZINESS [None]
  - DRY EYE [None]
  - HEART RATE INCREASED [None]
  - NERVOUS SYSTEM DISORDER [None]
  - PRODUCT FORMULATION ISSUE [None]
